FAERS Safety Report 4681084-2 (Version None)
Quarter: 2005Q2

REPORT INFORMATION
  Report Type: 
  Country: None (occurrence: None)
  Receive Date: 20050603
  Receipt Date: 20050526
  Transmission Date: 20051028
  Serious: Yes (Death)
  Sender: FDA-Public Use
  Company Number: GB-GLAXOSMITHKLINE-B0382473A

PATIENT
  Age: 46 Year
  Sex: Male
  Weight: 51.5 kg

DRUGS (4)
  1. PAROXETINE HCL [Suspect]
     Indication: AGORAPHOBIA
     Dosage: 30MG PER DAY
     Route: 048
     Dates: start: 20020819, end: 20050508
  2. OMEPRAZOLE [Concomitant]
     Indication: GASTRITIS
     Dosage: 20MG PER DAY
     Route: 048
     Dates: start: 19980803, end: 20050508
  3. COMBIVENT [Concomitant]
     Dosage: 2PUFF FOUR TIMES PER DAY
     Dates: start: 20040223, end: 20050508
  4. ZOPICLONE [Concomitant]
     Indication: INSOMNIA
     Dosage: 7.5MG AT NIGHT
     Route: 048
     Dates: start: 19980421, end: 20050508

REACTIONS (1)
  - GASTROINTESTINAL HAEMORRHAGE [None]
